FAERS Safety Report 5669274-3 (Version None)
Quarter: 2008Q1

REPORT INFORMATION
  Report Type: 
  Country: None (occurrence: None)
  Receive Date: 20080317
  Receipt Date: 20080304
  Transmission Date: 20080703
  Serious: No
  Sender: FDA-Public Use
  Company Number: JP-ELI_LILLY_AND_COMPANY-JP200802004024

PATIENT
  Age: 84 Year
  Sex: Female

DRUGS (5)
  1. ZYPREXA [Suspect]
     Indication: SCHIZOPHRENIA
     Dosage: 5 MG, DAILY (1/D)
     Route: 048
     Dates: start: 20071120, end: 20071226
  2. ZYPREXA [Suspect]
     Dosage: 10 MG, DAILY (1/D)
     Route: 048
     Dates: start: 20071227, end: 20080127
  3. ZYPREXA [Suspect]
     Dosage: 15 MG, DAILY (1/D)
     Route: 048
     Dates: start: 20080128, end: 20080130
  4. ZYPREXA [Suspect]
     Dosage: 20 MG, DAILY (1/D)
     Route: 048
     Dates: start: 20080131, end: 20080206
  5. TETRAMIDE [Concomitant]
     Indication: DEPRESSIVE SYMPTOM
     Dosage: 30 MG, DAILY (1/D)
     Route: 048
     Dates: end: 20080223

REACTIONS (2)
  - ELECTROCARDIOGRAM PR PROLONGATION [None]
  - ELECTROCARDIOGRAM QT PROLONGED [None]
